FAERS Safety Report 4424965-7 (Version None)
Quarter: 2004Q3

REPORT INFORMATION
  Report Type: 
  Country: None (occurrence: None)
  Receive Date: 20040811
  Receipt Date: 20040811
  Transmission Date: 20050211
  Serious: Yes (Other)
  Sender: FDA-Public Use
  Company Number: None

PATIENT
  Sex: Female

DRUGS (1)
  1. CONTROL RX 1.1% NEUTRAL SODIUM FLUORIDE DENTIFRICE [Suspect]
     Dosage: ONCE A DAY
     Dates: start: 20040628, end: 20040630

REACTIONS (3)
  - HYPOAESTHESIA [None]
  - HYPOAESTHESIA ORAL [None]
  - URTICARIA GENERALISED [None]
